FAERS Safety Report 8312168-5 (Version None)
Quarter: 2012Q2

REPORT INFORMATION
  Report Type: 
  Country: None (occurrence: None)
  Receive Date: 20120425
  Receipt Date: 20120413
  Transmission Date: 20120825
  Serious: Yes (Other)
  Sender: FDA-Public Use
  Company Number: DE-FRI-1000030026

PATIENT
  Sex: Female

DRUGS (5)
  1. ATACAND HCT [Concomitant]
     Indication: HYPERTENSION
     Dosage: 1 DF (8/12.5)
  2. TEBONIN [Concomitant]
     Indication: CEREBROVASCULAR ACCIDENT
     Dosage: 2 DF
  3. ASPIRIN [Concomitant]
     Indication: HAEMODILUTION
     Dosage: 1 DF
  4. GALACORDIN [Concomitant]
     Indication: CEREBROVASCULAR ACCIDENT
     Dosage: 2 DF
  5. FOSFOMYCIN [Suspect]
     Indication: CYSTITIS
     Route: 048
     Dates: start: 20120410, end: 20120410

REACTIONS (4)
  - DISTURBANCE IN ATTENTION [None]
  - BLOOD PRESSURE DECREASED [None]
  - ASTHENIA [None]
  - PALPITATIONS [None]
